FAERS Safety Report 8128849 (Version 5)
Quarter: 2012Q4

REPORT INFORMATION
  Report Type: 
  Country: US (occurrence: US)
  Receive Date: 20110909
  Receipt Date: 20121214
  Transmission Date: 20130627
  Serious: Yes (Other)
  Sender: FDA-Public Use
  Company Number: US-ROCHE-790433

PATIENT
  Age: 78 Year
  Sex: Male

DRUGS (1)
  1. AVASTIN [Suspect]
     Indication: PRODUCT USED FOR UNKNOWN INDICATION
     Dosage: ROUTE: IVT
     Route: 031

REACTIONS (6)
  - Endophthalmitis [Recovering/Resolving]
  - Deposit eye [Unknown]
  - Eye disorder [Unknown]
  - Visual acuity reduced [Unknown]
  - Product quality issue [Unknown]
  - Eye pain [Unknown]
